FAERS Safety Report 15125794 (Version 1)
Quarter: 2018Q3

REPORT INFORMATION
  Report Type: Spontaneous
  Country: US (occurrence: US)
  Receive Date: 20180710
  Receipt Date: 20180710
  Transmission Date: 20181010
  Serious: Yes (Other)
  Sender: FDA-Public Use
  Company Number: US-BRISTOL-MYERS SQUIBB COMPANY-BMS-2018-062842

PATIENT

DRUGS (1)
  1. ELIQUIS [Suspect]
     Active Substance: APIXABAN
     Indication: KNEE OPERATION
     Dosage: 5 MG, BID
     Route: 065

REACTIONS (3)
  - Transplant rejection [Unknown]
  - Product use in unapproved indication [Unknown]
  - Treatment noncompliance [Unknown]
